FAERS Safety Report 6442417-X (Version None)
Quarter: 2009Q4

REPORT INFORMATION
  Report Type: 
  Country: None (occurrence: None)
  Receive Date: 20091112
  Receipt Date: 20091101
  Transmission Date: 20100525
  Serious: Yes (Other)
  Sender: FDA-Public Use
  Company Number: POMP-1000588

PATIENT
  Age: 61 Year
  Sex: Male
  Weight: 45 kg

DRUGS (1)
  1. MYOZYME [Suspect]
     Indication: GLYCOGEN STORAGE DISEASE TYPE II
     Dosage: 700 MG, Q2W, INTRAVENOUS
     Route: 042
     Dates: start: 20070101

REACTIONS (4)
  - BODY TEMPERATURE INCREASED [None]
  - FEELING COLD [None]
  - HYPERSENSITIVITY [None]
  - TREMOR [None]
